FAERS Safety Report 8766349 (Version 2)
Quarter: 2012Q4

REPORT INFORMATION
  Report Type: 
  Country: JP (occurrence: JP)
  Receive Date: 20120904
  Receipt Date: 20120906
  Transmission Date: 20130627
  Serious: Yes (Congenital Anomaly)
  Sender: FDA-Public Use
  Company Number: JP-009507513-1208JPN011637

PATIENT

DRUGS (1)
  1. PROPECIA TABLETS 1MG [Suspect]
     Indication: ANDROGENETIC ALOPECIA
     Dosage: UNK UNK, qd
     Route: 064
     Dates: start: 20111210

REACTIONS (2)
  - Microcephaly [Unknown]
  - Exposure via father [Unknown]
